FAERS Safety Report 9472774 (Version 1)
Quarter: 2013Q3

REPORT INFORMATION
  Report Type: Spontaneous
  Country: US (occurrence: US)
  Receive Date: 20130823
  Receipt Date: 20130823
  Transmission Date: 20140515
  Serious: No
  Sender: FDA-Public Use
  Company Number: US-PFIZER INC-2013243282

PATIENT
  Age: 6 Year
  Sex: Male
  Weight: 18.14 kg

DRUGS (1)
  1. CHILDRENS ADVIL [Suspect]
     Indication: PYREXIA
     Dosage: UNK (2 TEASPOONS) AS NEEDED
     Route: 048
     Dates: start: 20130819, end: 20130820

REACTIONS (2)
  - Hallucination, visual [Recovered/Resolved]
  - Headache [Recovered/Resolved]
